FAERS Safety Report 6129846-9 (Version None)
Quarter: 2009Q1

REPORT INFORMATION
  Report Type: 
  Country: None (occurrence: None)
  Receive Date: 20090323
  Receipt Date: 20090323
  Transmission Date: 20090719
  Serious: No
  Sender: FDA-Public Use
  Company Number: None

PATIENT
  Age: 32 Year
  Sex: Female
  Weight: 49.8957 kg

DRUGS (1)
  1. BUPROPION HCL [Suspect]

REACTIONS (16)
  - AGITATION [None]
  - ANXIETY [None]
  - APATHY [None]
  - ASTHENIA [None]
  - CONFUSIONAL STATE [None]
  - CRYING [None]
  - DECREASED ACTIVITY [None]
  - DEPRESSION [None]
  - EDUCATIONAL PROBLEM [None]
  - FEELING OF DESPAIR [None]
  - INCREASED APPETITE [None]
  - IRRITABILITY [None]
  - LIBIDO DECREASED [None]
  - MEMORY IMPAIRMENT [None]
  - THERAPEUTIC RESPONSE UNEXPECTED WITH DRUG SUBSTITUTION [None]
  - WEIGHT INCREASED [None]
